FAERS Safety Report 15419328 (Version 1)
Quarter: 2018Q3

REPORT INFORMATION
  Report Type: Spontaneous
  Country: US (occurrence: US)
  Receive Date: 20180924
  Receipt Date: 20180924
  Transmission Date: 20181010
  Serious: No
  Sender: FDA-Public Use
  Company Number: US-PFIZER INC-2018378642

PATIENT
  Age: 65 Year
  Sex: Female
  Weight: 91.63 kg

DRUGS (1)
  1. NICOTROL [Suspect]
     Active Substance: NICOTINE
     Indication: SMOKING CESSATION THERAPY
     Dosage: 10MG 4MG DELIVERED 1 CARTRIDGE AS NEEDED 16 TIMES A DAY INHALATION FOR 30 DAYS

REACTIONS (3)
  - Prescription drug used without a prescription [Unknown]
  - Cough [Recovered/Resolved]
  - Pharyngeal paraesthesia [Recovered/Resolved]

NARRATIVE: CASE EVENT DATE: 201809
